FAERS Safety Report 9054620 (Version 1)
Quarter: 2013Q1

REPORT INFORMATION
  Report Type: Spontaneous
  Country: US (occurrence: US)
  Receive Date: 20130208
  Receipt Date: 20130208
  Transmission Date: 20140127
  Serious: Yes (Other)
  Sender: FDA-Public Use
  Company Number: US-JNJFOC-20130200670

PATIENT
  Age: 39 Year
  Sex: Male

DRUGS (2)
  1. IMODIUM A-D [Suspect]
     Route: 048
  2. IMODIUM A-D [Suspect]
     Indication: PRODUCT USED FOR UNKNOWN INDICATION
     Route: 048
     Dates: start: 1997, end: 1997

REACTIONS (4)
  - Haemorrhoids [Unknown]
  - Abnormal faeces [Unknown]
  - Anorectal disorder [Unknown]
  - Infertility male [Unknown]
